FAERS Safety Report 8839693 (Version 1)
Quarter: 2012Q4

REPORT INFORMATION
  Report Type: Spontaneous
  Country: FR (occurrence: None)
  Receive Date: 20121011
  Receipt Date: 20121011
  Transmission Date: 20130627
  Serious: Yes (Hospitalization)
  Sender: FDA-Public Use
  Company Number: 2012000212

PATIENT
  Age: 74 Year
  Sex: Male

DRUGS (4)
  1. ACEON (PERINDOPRIL ERBUMINE) TABLET [Suspect]
     Indication: HYPERTENSION ARTERIAL
     Route: 048
     Dates: start: 201205, end: 20120601
  2. TENORMIN [Concomitant]
  3. LASILIX [Concomitant]
  4. PREVISCAN [Concomitant]

REACTIONS (3)
  - Face oedema [None]
  - Angioedema [None]
  - Erythema [None]
